FAERS Safety Report 9727466 (Version 2)
Quarter: 2013Q4

REPORT INFORMATION
  Report Type: Spontaneous
  Country: DE (occurrence: None)
  Receive Date: 20131127
  Receipt Date: 20131218
  Transmission Date: 20140711
  Serious: Yes (Other)
  Sender: FDA-Public Use
  Company Number: AUR-APL-2013-09789

PATIENT
  Age: 62 Year
  Sex: Female

DRUGS (13)
  1. RAMIPRIL [Suspect]
     Indication: PRODUCT USED FOR UNKNOWN INDICATION
     Dosage: 10 MG, 1 D), ORAL
     Route: 048
     Dates: start: 20130411, end: 20130430
  2. QUETIAPINE [Suspect]
     Indication: PRODUCT USED FOR UNKNOWN INDICATION
     Dosage: 50 MG, 1 D, ORAL
     Route: 048
     Dates: start: 20130503, end: 20130624
  3. MIRTAZAPINE [Suspect]
     Indication: PRODUCT USED FOR UNKNOWN INDICATION
     Dosage: 30 MG, 1 D, ORAL
     Route: 048
     Dates: start: 20130406, end: 20130505
  4. QUILONIUM-R [Suspect]
     Indication: DEPRESSION
     Dosage: (225 MG,1 D)
     Route: 048
     Dates: start: 20130426, end: 20130428
  5. HYDROCHLOROTHIAZIDE [Suspect]
     Indication: PRODUCT USED FOR UNKNOWN INDICATION
     Dosage: 12.5 MG, 1 D
     Route: 048
     Dates: start: 20130412, end: 20130604
  6. OFLOXACIN [Suspect]
     Indication: PRODUCT USED FOR UNKNOWN INDICATION
     Dosage: 225 MG, 1 D, ORAL
     Route: 048
     Dates: start: 20130426
  7. ELONTRIL [Suspect]
     Dosage: 300 MG,1 D
     Route: 048
     Dates: start: 20130418
  8. LORAZEPAM (LORAZEPAM) [Concomitant]
  9. CARVEDILOL (CARVEDILOL) [Concomitant]
  10. PANTOPRAZOLE (PANTOPRAZOLE) [Concomitant]
  11. TRAMAL (TRAMADOL HYDROCHLORIDE) [Concomitant]
  12. ZOPICLON (ZOPICLONE [Concomitant]
  13. L-THYROXIN (LEVOTHYROXINE SODIUM) [Concomitant]

REACTIONS (2)
  - Delirium [None]
  - Drug interaction [None]
